FAERS Safety Report 4357268-X (Version None)
Quarter: 2004Q2

REPORT INFORMATION
  Report Type: 
  Country: None (occurrence: None)
  Receive Date: 20040506
  Receipt Date: 20040426
  Transmission Date: 20050107
  Serious: Yes (Hospitalization)
  Sender: FDA-Public Use
  Company Number: US-JNJFOC-20040306375

PATIENT
  Age: 62 Year
  Sex: Female
  Weight: 54.4316 kg

DRUGS (3)
  1. RETEVASE [Suspect]
     Indication: PERIPHERAL EMBOLISM
     Dosage: SEE IMAGE
     Dates: start: 20040310, end: 20040311
  2. RETEVASE [Suspect]
     Indication: PERIPHERAL EMBOLISM
     Dosage: SEE IMAGE
     Dates: start: 20040310
  3. HEPARIN [Concomitant]

REACTIONS (8)
  - BRAIN COMPRESSION [None]
  - BRAIN OEDEMA [None]
  - CEREBRAL VENTRICLE DILATATION [None]
  - INTRACRANIAL HAEMATOMA [None]
  - LEG AMPUTATION [None]
  - SUBARACHNOID HAEMORRHAGE [None]
  - THERAPEUTIC RESPONSE DECREASED [None]
  - VENIPUNCTURE SITE HAEMORRHAGE [None]
